FAERS Safety Report 5742166-7 (Version None)
Quarter: 2008Q2

REPORT INFORMATION
  Report Type: 
  Country: None (occurrence: None)
  Receive Date: 20080515
  Receipt Date: 20080430
  Transmission Date: 20081010
  Serious: Yes (Other)
  Sender: FDA-Public Use
  Company Number: 2008S1007477

PATIENT
  Sex: Female

DRUGS (4)
  1. CELEBREX [Suspect]
     Indication: PAIN
     Dosage: 200 MG
     Dates: start: 19980101
  2. NAPROXEN [Suspect]
     Dosage: ORAL
     Route: 048
  3. ATIVAN [Concomitant]
  4. CYTOTEC [Concomitant]

REACTIONS (8)
  - DERMATITIS [None]
  - FOOD INTOLERANCE [None]
  - HERPES ZOSTER [None]
  - LICHEN MYXOEDEMATOSUS [None]
  - SCLERODERMA [None]
  - SKIN ATROPHY [None]
  - SKIN LACERATION [None]
  - STOMACH DISCOMFORT [None]
